FAERS Safety Report 21105203 (Version 1)
Quarter: 2022Q3

REPORT INFORMATION
  Report Type: Spontaneous
  Country: US (occurrence: None)
  Receive Date: 20220719
  Receipt Date: 20220719
  Transmission Date: 20221027
  Serious: Yes (Disabling)
  Sender: FDA-Public Use
  Company Number: None

PATIENT
  Age: 24 Year
  Sex: Female
  Weight: 48.6 kg

DRUGS (3)
  1. HYALURONIDASE [Suspect]
     Active Substance: HYALURONIDASE
     Indication: Dermal filler injection
  2. VITAMIN C [Concomitant]
     Active Substance: ASCORBIC ACID
  3. ZINC [Concomitant]
     Active Substance: ZINC

REACTIONS (10)
  - Burning sensation [None]
  - Therapeutic product effect decreased [None]
  - Skin atrophy [None]
  - Skin disorder [None]
  - Muscle disorder [None]
  - Weight decreased [None]
  - Dizziness [None]
  - Headache [None]
  - Asthenia [None]
  - Arthropathy [None]

NARRATIVE: CASE EVENT DATE: 20220601
